FAERS Safety Report 6255703-3 (Version None)
Quarter: 2009Q3

REPORT INFORMATION
  Report Type: 
  Country: None (occurrence: None)
  Receive Date: 20090702
  Receipt Date: 20090624
  Transmission Date: 20100115
  Serious: Yes (Other)
  Sender: FDA-Public Use
  Company Number: US-B.I. PHARMACEUTICALS,INC./RIDGEFIELD-2009-DE-04484GD

PATIENT
  Sex: Female

DRUGS (2)
  1. PRAMIPEXOLE DIHYDROCHLORIDE [Suspect]
     Indication: RESTLESS LEGS SYNDROME
     Dosage: 0.25 MG
  2. PRAMIPEXOLE DIHYDROCHLORIDE [Suspect]
     Dosage: 1 MG

REACTIONS (4)
  - COMPULSIVE SHOPPING [None]
  - CONDITION AGGRAVATED [None]
  - IMPULSE-CONTROL DISORDER [None]
  - WEIGHT INCREASED [None]
